FAERS Safety Report 23656709 (Version 3)
Quarter: 2024Q3

REPORT INFORMATION
  Report Type: Spontaneous
  Country: ES (occurrence: ES)
  Receive Date: 20240321
  Receipt Date: 20240803
  Transmission Date: 20241017
  Serious: Yes (Hospitalization, Other)
  Sender: AUROBINDO
  Company Number: ES-MLMSERVICE-20240304-4859728-1

PATIENT
  Age: 60 Year
  Sex: Female

DRUGS (6)
  1. FLECAINIDE [Suspect]
     Active Substance: FLECAINIDE
     Indication: Atrial fibrillation
     Dosage: 50 MILLIGRAM, TWO TIMES A DAY
     Route: 065
  2. FLECAINIDE [Suspect]
     Active Substance: FLECAINIDE
     Indication: Heart failure with preserved ejection fraction
  3. BISOPROLOL [Concomitant]
     Active Substance: BISOPROLOL\BISOPROLOL FUMARATE
     Indication: Heart failure with preserved ejection fraction
     Dosage: 5 MILLIGRAM, ONCE A DAY
     Route: 065
  4. BISOPROLOL [Concomitant]
     Active Substance: BISOPROLOL\BISOPROLOL FUMARATE
     Indication: Atrial fibrillation
  5. RIVAROXABAN [Concomitant]
     Active Substance: RIVAROXABAN
     Indication: Heart failure with preserved ejection fraction
     Dosage: 20 MILLIGRAM, ONCE A DAY
     Route: 065
  6. RIVAROXABAN [Concomitant]
     Active Substance: RIVAROXABAN
     Indication: Atrial fibrillation

REACTIONS (11)
  - Electrocardiogram QRS complex prolonged [Recovering/Resolving]
  - Electrocardiogram abnormal [Recovering/Resolving]
  - Shock [Recovering/Resolving]
  - Toxicity to various agents [Unknown]
  - Depressed level of consciousness [Unknown]
  - Bradyarrhythmia [Unknown]
  - Haemodynamic instability [Unknown]
  - Hypoperfusion [Unknown]
  - Hypotension [Unknown]
  - Nausea [Unknown]
  - Vomiting [Unknown]
